FAERS Safety Report 13422022 (Version 4)
Quarter: 2018Q4

REPORT INFORMATION
  Report Type: Spontaneous
  Country: SG (occurrence: SG)
  Receive Date: 20170410
  Receipt Date: 20181010
  Transmission Date: 20190204
  Serious: Yes (Other)
  Sender: FDA-Public Use
  Company Number: SG-SUN PHARMACEUTICAL INDUSTRIES LTD-2017RR-137325

PATIENT
  Age: 55 Year
  Sex: Male

DRUGS (8)
  1. FENTANYL. [Interacting]
     Active Substance: FENTANYL
     Dosage: 25 ?G, UNK
     Route: 042
  2. XYLOCAINE 10% SPRAY [Concomitant]
     Dosage: UNK
     Route: 048
  3. FENTANYL. [Interacting]
     Active Substance: FENTANYL
     Dosage: 50 ?G, UNK
     Route: 042
  4. MIDAZOLAM [Interacting]
     Active Substance: MIDAZOLAM HYDROCHLORIDE
     Dosage: 2 MG, UNK
     Route: 042
  5. XYLOCAINE 10% SPRAY [Concomitant]
     Indication: PRODUCT USED FOR UNKNOWN INDICATION
     Dosage: UNK
     Route: 045
  6. MIDAZOLAM [Suspect]
     Active Substance: MIDAZOLAM HYDROCHLORIDE
     Indication: SEDATION
     Dosage: 1 MG, UNK
     Route: 042
  7. MIDAZOLAM [Interacting]
     Active Substance: MIDAZOLAM HYDROCHLORIDE
     Dosage: 2 MG, UNK
     Route: 042
  8. FENTANYL. [Interacting]
     Active Substance: FENTANYL
     Indication: SEDATION
     Dosage: 25 ?G, UNK
     Route: 042

REACTIONS (3)
  - Drug interaction [Unknown]
  - Sinus bradycardia [Unknown]
  - Chest discomfort [Recovered/Resolved]
